FAERS Safety Report 5095938-9 (Version None)
Quarter: 2006Q3

REPORT INFORMATION
  Report Type: 
  Country: None (occurrence: None)
  Receive Date: 20060731
  Receipt Date: 20060421
  Transmission Date: 20061208
  Serious: No
  Sender: FDA-Public Use
  Company Number: 2006PV012538

PATIENT
  Age: 56 Year
  Sex: Female
  Weight: 120.6568 kg

DRUGS (3)
  1. BYETTA [Suspect]
     Indication: DIABETES MELLITUS NON-INSULIN-DEPENDENT
     Dosage: 10 MCG; BID; SC
     Route: 058
     Dates: start: 20060413
  2. METFORMIN HCL [Concomitant]
  3. HUMULIN 70/30 [Concomitant]

REACTIONS (11)
  - DIARRHOEA [None]
  - EYE PRURITUS [None]
  - HEADACHE [None]
  - HYPERSENSITIVITY [None]
  - LACRIMATION INCREASED [None]
  - NAUSEA [None]
  - OCULAR HYPERAEMIA [None]
  - SINUS CONGESTION [None]
  - SNEEZING [None]
  - VOMITING [None]
  - WEIGHT DECREASED [None]
